FAERS Safety Report 25243330 (Version 1)
Quarter: 2025Q2

REPORT INFORMATION
  Report Type: Spontaneous
  Country: US (occurrence: US)
  Receive Date: 20250428
  Receipt Date: 20250428
  Transmission Date: 20250716
  Serious: No
  Sender: BAUSCH AND LOMB
  Company Number: US-BAUSCHBL-2025BNL006907

PATIENT
  Sex: Female

DRUGS (2)
  1. ERYTHROMYCIN [Suspect]
     Active Substance: ERYTHROMYCIN
     Indication: Product used for unknown indication
     Route: 047
  2. RESTASIS [Concomitant]
     Active Substance: CYCLOSPORINE
     Indication: Product used for unknown indication

REACTIONS (2)
  - Eye pruritus [Unknown]
  - Eye irritation [Unknown]

NARRATIVE: CASE EVENT DATE: 20250401
